FAERS Safety Report 16906416 (Version 1)
Quarter: 2019Q4

REPORT INFORMATION
  Report Type: Spontaneous
  Country: US (occurrence: US)
  Receive Date: 20191011
  Receipt Date: 20191011
  Transmission Date: 20200122
  Serious: No
  Sender: FDA-Public Use
  Company Number: US-BRISTOL-MYERS SQUIBB COMPANY-BMS-2019-097520

PATIENT
  Sex: Female
  Weight: 69.8 kg

DRUGS (1)
  1. ELIQUIS [Suspect]
     Active Substance: APIXABAN
     Indication: CEREBROVASCULAR ACCIDENT PROPHYLAXIS
     Dosage: UNK, BID
     Route: 048
     Dates: start: 2019

REACTIONS (6)
  - Dizziness [Unknown]
  - Malaise [Unknown]
  - Fatigue [Unknown]
  - Headache [Unknown]
  - Drug ineffective [Unknown]
  - Epistaxis [Unknown]
